FAERS Safety Report 5646784-6 (Version None)
Quarter: 2008Q1

REPORT INFORMATION
  Report Type: 
  Country: None (occurrence: None)
  Receive Date: 20080303
  Receipt Date: 20080225
  Transmission Date: 20080703
  Serious: Yes (Life-Threatening, Hospitalization)
  Sender: FDA-Public Use
  Company Number: ES-AVENTIS-200810910EU

PATIENT
  Age: 79 Year
  Sex: Female

DRUGS (6)
  1. SEGURIL                            /00032601/ [Suspect]
     Indication: CHRONIC HEPATITIS
     Route: 048
     Dates: start: 20070820, end: 20070903
  2. ALDACTONE [Suspect]
     Indication: CHRONIC HEPATITIS
     Route: 048
     Dates: start: 20070820, end: 20070903
  3. EMCONCOR                           /00802601/ [Suspect]
     Indication: DRUG USE FOR UNKNOWN INDICATION
     Route: 048
     Dates: end: 20070903
  4. OMEPRAZOLE [Concomitant]
     Route: 048
  5. COZAAR [Concomitant]
     Indication: HYPERTENSION
     Dosage: DOSE: UNK
     Route: 048
     Dates: end: 20070903
  6. SERTRALINE [Concomitant]
     Indication: DEPRESSION
     Dosage: DOSE: UNK
     Route: 048

REACTIONS (2)
  - HYPERKALAEMIA [None]
  - RENAL FAILURE ACUTE [None]
